FAERS Safety Report 5420301-8 (Version None)
Quarter: 2007Q3

REPORT INFORMATION
  Report Type: 
  Country: None (occurrence: None)
  Receive Date: 20070820
  Receipt Date: 20001115
  Transmission Date: 20080115
  Serious: Yes (Hospitalization, Disabling)
  Sender: FDA-Public Use
  Company Number: US-MERCK-00111451

PATIENT
  Age: 1 Month
  Sex: Male

DRUGS (1)
  1. DIURIL [Suspect]
     Indication: DIABETES INSIPIDUS
     Route: 048
     Dates: start: 19980101

REACTIONS (3)
  - DEHYDRATION [None]
  - GENERAL SYMPTOM [None]
  - MENTAL RETARDATION SEVERITY UNSPECIFIED [None]
